FAERS Safety Report 9614590 (Version 2)
Quarter: 2013Q4

REPORT INFORMATION
  Report Type: Spontaneous
  Country: JP (occurrence: JP)
  Receive Date: 20131011
  Receipt Date: 20131018
  Transmission Date: 20140711
  Serious: Yes (Hospitalization)
  Sender: FDA-Public Use
  Company Number: PHHY2013JP114224

PATIENT
  Sex: Male

DRUGS (3)
  1. CO-DIOVAN [Suspect]
     Dosage: 1 DF, DAILY
     Route: 048
  2. PLAVIX [Concomitant]
     Dosage: UNK UKN, UNK
     Route: 048
  3. INVEGA (PALIPERIDONE) [Concomitant]
     Dosage: UNK UKN, UNK
     Route: 048

REACTIONS (2)
  - Mental disorder [Not Recovered/Not Resolved]
  - Condition aggravated [Not Recovered/Not Resolved]
